FAERS Safety Report 16552445 (Version 1)
Quarter: 2019Q3

REPORT INFORMATION
  Report Type: Spontaneous
  Country: US (occurrence: US)
  Receive Date: 20190709
  Receipt Date: 20190709
  Transmission Date: 20191004
  Serious: Yes (Other)
  Sender: FDA-Public Use
  Company Number: None

PATIENT
  Age: 34 Year
  Sex: Female
  Weight: 98.88 kg

DRUGS (2)
  1. VITAMINS [Concomitant]
     Active Substance: VITAMINS
  2. KYLEENA [Suspect]
     Active Substance: LEVONORGESTREL
     Dates: start: 20180420, end: 20190426

REACTIONS (3)
  - Genital infection female [None]
  - Actinomyces test positive [None]
  - Complication associated with device [None]

NARRATIVE: CASE EVENT DATE: 20190614
